FAERS Safety Report 17647300 (Version 1)
Quarter: 2020Q2

REPORT INFORMATION
  Report Type: Spontaneous
  Country: US (occurrence: US)
  Receive Date: 20200408
  Receipt Date: 20200408
  Transmission Date: 20200713
  Serious: No
  Sender: FDA-Public Use
  Company Number: US-OPTINOSE US, INC-2020OPT000122

PATIENT
  Age: 59 Year
  Sex: Male

DRUGS (1)
  1. XHANCE [Suspect]
     Active Substance: FLUTICASONE PROPIONATE
     Indication: ANOSMIA
     Route: 045
     Dates: start: 20200122, end: 20200205

REACTIONS (5)
  - Cough [Unknown]
  - Drug ineffective for unapproved indication [Unknown]
  - Upper-airway cough syndrome [Unknown]
  - Headache [Unknown]
  - Pyrexia [Unknown]

NARRATIVE: CASE EVENT DATE: 20200122
